FAERS Safety Report 5770866-1 (Version None)
Quarter: 2008Q2

REPORT INFORMATION
  Report Type: 
  Country: None (occurrence: None)
  Receive Date: 20080613
  Receipt Date: 20080516
  Transmission Date: 20081010
  Serious: No
  Sender: FDA-Public Use
  Company Number: US-ABBOTT-08P-163-0452405-00

PATIENT
  Sex: Female
  Weight: 63.56 kg

DRUGS (5)
  1. HUMIRA [Suspect]
     Indication: RHEUMATOID ARTHRITIS
     Route: 050
     Dates: start: 20050501, end: 20070201
  2. HUMIRA [Suspect]
     Route: 050
     Dates: start: 20080101
  3. INSULIN LISPRO [Concomitant]
     Indication: TYPE 1 DIABETES MELLITUS
     Route: 050
  4. NPH [Concomitant]
     Indication: TYPE 1 DIABETES MELLITUS
     Route: 050
  5. INSULIN GLARGINE [Concomitant]
     Indication: TYPE 1 DIABETES MELLITUS
     Route: 050

REACTIONS (4)
  - INJECTION SITE ERYTHEMA [None]
  - INJECTION SITE REACTION [None]
  - INJECTION SITE SWELLING [None]
  - RHEUMATOID ARTHRITIS [None]
